FAERS Safety Report 24430809 (Version 1)
Quarter: 2024Q4

REPORT INFORMATION
  Report Type: Spontaneous
  Country: PL (occurrence: PL)
  Receive Date: 20241014
  Receipt Date: 20241014
  Transmission Date: 20250115
  Serious: Yes (Hospitalization, Other)
  Sender: AUROBINDO
  Company Number: PL-URPL-1-2550-2020

PATIENT
  Age: 55 Year
  Sex: Male

DRUGS (8)
  1. FUROSEMIDE [Suspect]
     Active Substance: FUROSEMIDE
     Indication: Hypertension
     Dosage: UNK UNK, ONCE A DAY (2-0-0)
     Route: 048
  2. SERTRALINE HYDROCHLORIDE [Suspect]
     Active Substance: SERTRALINE HYDROCHLORIDE
     Indication: Depression
     Dosage: 50 MILLIGRAM, ONCE A DAY (1-0-0)
     Route: 048
  3. METOPROLOL TARTRATE [Suspect]
     Active Substance: METOPROLOL TARTRATE
     Indication: Product used for unknown indication
     Dosage: UNK UNK, ONCE A DAY (1-0-0)
     Route: 048
  4. QUETIAPINE FUMARATE [Suspect]
     Active Substance: QUETIAPINE FUMARATE
     Indication: Depression
     Dosage: UNK UNK, ONCE A DAY (0-0-1)
     Route: 048
  5. CYCLOSPORINE [Suspect]
     Active Substance: CYCLOSPORINE
     Indication: Renal transplant
     Dosage: UNK UNK, TWO TIMES A DAY (2-0-2)
     Route: 048
     Dates: start: 20150723
  6. PREDNISONE [Suspect]
     Active Substance: PREDNISONE
     Indication: Product used for unknown indication
     Dosage: UNK UNK, ONCE A DAY (1-0-0)
     Route: 048
  7. Amlopin [Concomitant]
     Indication: Hypertension
     Dosage: UNK UNK, ONCE A DAY (1-0-0)
     Route: 048
  8. FAMOGAST [Concomitant]
     Indication: Gastritis
     Dosage: UNK UNK, ONCE A DAY (0-0-1)
     Route: 048

REACTIONS (5)
  - Diabetes mellitus [Recovering/Resolving]
  - Dyspnoea [Recovering/Resolving]
  - Asthenia [Recovering/Resolving]
  - Anaemia [Recovering/Resolving]
  - Dizziness [Recovering/Resolving]

NARRATIVE: CASE EVENT DATE: 20200921
